FAERS Safety Report 6140375-9 (Version None)
Quarter: 2009Q1

REPORT INFORMATION
  Report Type: 
  Country: None (occurrence: None)
  Receive Date: 20090331
  Receipt Date: 20090331
  Transmission Date: 20090719
  Serious: No
  Sender: FDA-Public Use
  Company Number: None

PATIENT
  Sex: Female
  Weight: 52.1637 kg

DRUGS (2)
  1. ZOLPIDEM [Suspect]
     Indication: INSOMNIA
     Dosage: 5 MG 1/DAY PO
     Route: 048
     Dates: start: 20090101, end: 20090114
  2. ZOLPIDEM [Suspect]
     Indication: INSOMNIA
     Dosage: 5 MG 1/DAY PO
     Route: 048
     Dates: start: 20090329, end: 20090331

REACTIONS (2)
  - DYSPEPSIA [None]
  - GASTROOESOPHAGEAL REFLUX DISEASE [None]
